FAERS Safety Report 8322485-0 (Version None)
Quarter: 2012Q2

REPORT INFORMATION
  Report Type: 
  Country: None (occurrence: None)
  Receive Date: 20120430
  Receipt Date: 20120424
  Transmission Date: 20120825
  Serious: Yes (Other)
  Sender: FDA-Public Use
  Company Number: CA-PFIZER INC-2012077352

PATIENT
  Age: 61 Year
  Sex: Male
  Weight: 109 kg

DRUGS (7)
  1. GLYBURIDE [Concomitant]
     Dosage: 10 MG, UNK
  2. LYRICA [Suspect]
     Dosage: 150 MG, 1X/DAY
     Route: 048
     Dates: end: 20120331
  3. METFORMIN [Concomitant]
     Dosage: 500 MG, UNK
  4. NORVASC [Concomitant]
     Dosage: 10 MG, UNK
  5. METOPROLOL SUCCINATE [Concomitant]
     Dosage: 50 MG, UNK
  6. LYRICA [Suspect]
     Indication: NEUROPATHY PERIPHERAL
     Dosage: 50 MG, UNK
     Route: 048
     Dates: start: 20110301
  7. ALTACE [Concomitant]
     Dosage: 10 MG, UNK

REACTIONS (11)
  - PERSONALITY DISORDER [None]
  - PAIN [None]
  - SEDATION [None]
  - EUPHORIC MOOD [None]
  - SOMNOLENCE [None]
  - PARAESTHESIA [None]
  - IMPAIRED DRIVING ABILITY [None]
  - DISTURBANCE IN ATTENTION [None]
  - INCOHERENT [None]
  - DIZZINESS [None]
  - HYPOAESTHESIA [None]
